FAERS Safety Report 24312027 (Version 3)
Quarter: 2024Q4

REPORT INFORMATION
  Report Type: Report from Study
  Country: CH (occurrence: CH)
  Receive Date: 20240912
  Receipt Date: 20241001
  Transmission Date: 20250114
  Serious: Yes (Hospitalization)
  Sender: ABBVIE
  Company Number: CH-ABBVIE-5887657

PATIENT
  Age: 89 Year
  Sex: Female

DRUGS (7)
  1. CARBIDOPA\LEVODOPA [Suspect]
     Active Substance: CARBIDOPA\LEVODOPA
     Indication: Parkinson^s disease
     Dosage: MD: 5.0 ML, CRD: 2.9 ML/H, ED: 1.0 ML?16H THERAPY
     Route: 050
     Dates: start: 20240818, end: 20240818
  2. CARBIDOPA\LEVODOPA [Suspect]
     Active Substance: CARBIDOPA\LEVODOPA
     Dosage: 16H THERAPY
     Route: 050
     Dates: start: 20200302
  3. CARBIDOPA\LEVODOPA [Suspect]
     Active Substance: CARBIDOPA\LEVODOPA
     Dosage: MD: 5.0 ML, CRD: 2.9 ML/H, ED: 1.0 ML?16H THERAPY
     Route: 050
     Dates: start: 20240530, end: 20240818
  4. CARBIDOPA\LEVODOPA [Suspect]
     Active Substance: CARBIDOPA\LEVODOPA
     Dosage: MD: 5.0 ML, CRD: 2.9 ML/H, ED: 1.0 ML?FREQUENCY TEXT: 16H THERAPY
     Route: 050
     Dates: start: 20240818, end: 20240905
  5. CARBIDOPA\LEVODOPA [Suspect]
     Active Substance: CARBIDOPA\LEVODOPA
     Dosage: MD: 5.0 ML, CRD: 2.7 ML/H, ED: 1.0 ML?16H THERAPY
     Route: 050
     Dates: start: 20240905, end: 20240926
  6. CARBIDOPA\LEVODOPA [Suspect]
     Active Substance: CARBIDOPA\LEVODOPA
     Dosage: MD: 5.0 ML, CRD: 2.5 ML/H, ED: 1.0 ML
     Route: 050
     Dates: start: 20240926
  7. BENSERAZIDE HYDROCHLORIDE\LEVODOPA [Concomitant]
     Active Substance: BENSERAZIDE HYDROCHLORIDE\LEVODOPA
     Indication: Parkinson^s disease
     Route: 048
     Dates: start: 20240818

REACTIONS (11)
  - Forearm fracture [Unknown]
  - Device dislocation [Unknown]
  - Device dislocation [Recovered/Resolved]
  - Device breakage [Unknown]
  - Device issue [Recovered/Resolved]
  - Off label use [Recovered/Resolved]
  - Dyskinesia [Not Recovered/Not Resolved]
  - Urinary incontinence [Unknown]
  - Pyelonephritis [Unknown]
  - Device breakage [Recovered/Resolved]
  - Pain in extremity [Not Recovered/Not Resolved]

NARRATIVE: CASE EVENT DATE: 20240808
